FAERS Safety Report 9857625 (Version 2)
Quarter: 2014Q1

REPORT INFORMATION
  Report Type: Spontaneous
  Country: NL (occurrence: NL)
  Receive Date: 20140131
  Receipt Date: 20140327
  Transmission Date: 20141002
  Serious: No
  Sender: FDA-Public Use
  Company Number: NL-BIOGENIDEC-2014BI007050

PATIENT
  Age: 49 Year
  Sex: Male

DRUGS (6)
  1. TYSABRI [Suspect]
     Indication: MULTIPLE SCLEROSIS
     Route: 042
     Dates: start: 20100828, end: 20131126
  2. ISOSORBIDE MONONITRATE [Concomitant]
  3. ATORVASTATIN [Concomitant]
  4. METFORMIN [Concomitant]
  5. AMLODIPINE [Concomitant]
  6. ASPIRIN [Concomitant]

REACTIONS (9)
  - Hypertension [Unknown]
  - Hypercholesterolaemia [Unknown]
  - Cough [Not Recovered/Not Resolved]
  - Lung infiltration [Unknown]
  - Pallor [Unknown]
  - Nasopharyngitis [Unknown]
  - Weight decreased [Unknown]
  - Interstitial lung disease [Unknown]
  - Respiratory tract infection [Unknown]
